FAERS Safety Report 24708212 (Version 2)
Quarter: 2024Q4

REPORT INFORMATION
  Report Type: Spontaneous
  Country: CH (occurrence: CH)
  Receive Date: 20241207
  Receipt Date: 20241213
  Transmission Date: 20250115
  Serious: Yes (Hospitalization, Other)
  Sender: SANDOZ
  Company Number: CH-002147023-NVSC2020CH045131

PATIENT
  Age: 82 Year
  Sex: Female
  Weight: 56 kg

DRUGS (4)
  1. ANASTROZOLE [Suspect]
     Active Substance: ANASTROZOLE
     Indication: Breast cancer
     Dosage: 1 MG, QD; START DATE: 21-NOV-2019
     Route: 048
     Dates: start: 20191121, end: 20200708
  2. FASLODEX [Suspect]
     Active Substance: FULVESTRANT
     Indication: Breast cancer
     Dosage: 250 MG/5 ML
     Route: 030
  3. RIBOCICLIB [Suspect]
     Active Substance: RIBOCICLIB
     Dosage: 200 MG, QD (3 WEEKS ON 1 WEEK OFF); START DATE: 21-NOV-2019
     Route: 048
  4. RIBOCICLIB [Suspect]
     Active Substance: RIBOCICLIB
     Indication: Breast cancer
     Dosage: 400 MG,400 MG (3 WEEKS ON 1 WEEK OFF); START DATE: 21-NOV-2019
     Route: 048
     Dates: end: 20191203

REACTIONS (4)
  - Anaemia [Recovered/Resolved]
  - Pruritus [Not Recovered/Not Resolved]
  - Blood creatinine increased [Not Recovered/Not Resolved]
  - Rib fracture [Recovered/Resolved]

NARRATIVE: CASE EVENT DATE: 20191202
